FAERS Safety Report 21434315 (Version 1)
Quarter: 2022Q4

REPORT INFORMATION
  Report Type: Report from Study
  Country: US (occurrence: US)
  Receive Date: 20221010
  Receipt Date: 20221010
  Transmission Date: 20230112
  Serious: Yes (Death, Other)
  Sender: FDA-Public Use
  Company Number: US-SUN PHARMACEUTICAL INDUSTRIES LTD-2022R1-357820

PATIENT
  Age: 12 Year
  Sex: Male

DRUGS (9)
  1. DECITABINE [Suspect]
     Active Substance: DECITABINE
     Indication: Precursor T-lymphoblastic lymphoma/leukaemia
     Dosage: UNK (2 CYCLES)
     Route: 065
  2. DEXAMETHASONE [Suspect]
     Active Substance: DEXAMETHASONE
     Indication: Precursor T-lymphoblastic lymphoma/leukaemia
     Dosage: UNK (2 CYCLES)
     Route: 065
  3. DOXORUBICIN [Suspect]
     Active Substance: DOXORUBICIN
     Indication: Precursor T-lymphoblastic lymphoma/leukaemia
     Dosage: UNK (2 CYCLES)
     Route: 065
  4. METHOTREXATE [Suspect]
     Active Substance: METHOTREXATE
     Indication: Precursor T-lymphoblastic lymphoma/leukaemia
     Dosage: UNK (2 CYCLES)
     Route: 065
  5. VINCRISTINE [Suspect]
     Active Substance: VINCRISTINE
     Indication: Precursor T-lymphoblastic lymphoma/leukaemia
     Dosage: UNK (2 CYCLES)
     Route: 065
  6. CYTARABINE [Suspect]
     Active Substance: CYTARABINE
     Indication: Precursor T-lymphoblastic lymphoma/leukaemia
     Dosage: UNK (2 CYCLES)
     Route: 065
  7. CYCLOPHOSPHAMIDE [Suspect]
     Active Substance: CYCLOPHOSPHAMIDE
     Indication: Precursor T-lymphoblastic lymphoma/leukaemia
     Dosage: UNK (2 CYCLES)
     Route: 065
  8. POSACONAZOLE [Concomitant]
     Active Substance: POSACONAZOLE
     Indication: Precursor T-lymphoblastic lymphoma/leukaemia
     Dosage: UNK
     Route: 065
  9. VENETOCLAX [Concomitant]
     Active Substance: VENETOCLAX
     Indication: Precursor T-lymphoblastic lymphoma/leukaemia
     Dosage: 100 MILLIGRAM, DAILY (2 CYCLES)
     Route: 065

REACTIONS (2)
  - Therapy non-responder [Fatal]
  - Thrombocytopenia [Unknown]
